FAERS Safety Report 9962602 (Version 1)
Quarter: 2014Q1

REPORT INFORMATION
  Report Type: Report from Study
  Country: US (occurrence: US)
  Receive Date: 20140305
  Receipt Date: 20140305
  Transmission Date: 20141002
  Serious: No
  Sender: FDA-Public Use
  Company Number: US-ABBVIE-13P-163-1112315-00

PATIENT
  Age: 45 Year
  Sex: Female

DRUGS (4)
  1. HUMIRA [Suspect]
     Indication: CROHN^S DISEASE
     Route: 058
     Dates: start: 20130329
  2. CELEXA [Concomitant]
     Indication: DEPRESSION
     Dosage: ONCE A DAY
  3. CELEXA [Concomitant]
     Indication: INSOMNIA
  4. KLONOPIN [Concomitant]
     Indication: INSOMNIA
     Dosage: EVERY NIGHT

REACTIONS (5)
  - Malaise [Recovering/Resolving]
  - Infection [Recovering/Resolving]
  - Lymphadenopathy [Recovering/Resolving]
  - Neck pain [Recovering/Resolving]
  - Pharyngeal erythema [Recovering/Resolving]
